FAERS Safety Report 5469558-8 (Version None)
Quarter: 2007Q3

REPORT INFORMATION
  Report Type: 
  Country: None (occurrence: None)
  Receive Date: 20070927
  Receipt Date: 20070918
  Transmission Date: 20080115
  Serious: Yes (Hospitalization)
  Sender: FDA-Public Use
  Company Number: JP-JNJFOC-20070904800

PATIENT
  Age: 51 Year
  Sex: Female

DRUGS (7)
  1. REMICADE [Suspect]
     Indication: BEHCET'S SYNDROME
     Dosage: TOTAL OF 2 INFUSIONS
     Route: 042
  2. PREDNISOLONE [Concomitant]
     Route: 048
  3. PREDNISOLONE [Concomitant]
     Route: 048
  4. AZULFIDINE EN-TABS [Concomitant]
     Route: 048
  5. ADRENAL HORMONE PREPARATION [Concomitant]
  6. ISONIAZID [Concomitant]
  7. SULFAMETHOXAZOLE AND TRIMETHOPRIM [Concomitant]

REACTIONS (3)
  - ATYPICAL MYCOBACTERIAL INFECTION [None]
  - CANDIDA PNEUMONIA [None]
  - PNEUMONIA BACTERIAL [None]
